FAERS Safety Report 21029427 (Version 1)
Quarter: 2022Q2

REPORT INFORMATION
  Report Type: Spontaneous
  Country: US (occurrence: US)
  Receive Date: 20220630
  Receipt Date: 20220630
  Transmission Date: 20220721
  Serious: No
  Sender: FDA-Public Use
  Company Number: US-ELI_LILLY_AND_COMPANY-US202206014285

PATIENT
  Age: 74 Year
  Sex: Female

DRUGS (3)
  1. HUMALOG [Suspect]
     Active Substance: INSULIN LISPRO
     Indication: Type 1 diabetes mellitus
     Dosage: 100 U, DAILY
     Route: 065
     Dates: start: 20220627
  2. HUMALOG [Suspect]
     Active Substance: INSULIN LISPRO
     Dosage: 100 U, DAILY
     Route: 065
     Dates: start: 20220627
  3. HUMALOG [Suspect]
     Active Substance: INSULIN LISPRO
     Dosage: 100 U, DAILY
     Route: 065
     Dates: start: 20220627

REACTIONS (2)
  - Blood glucose increased [Not Recovered/Not Resolved]
  - Insulin resistance [Not Recovered/Not Resolved]

NARRATIVE: CASE EVENT DATE: 20220627
